FAERS Safety Report 7707985-6 (Version None)
Quarter: 2011Q3

REPORT INFORMATION
  Report Type: 
  Country: None (occurrence: None)
  Receive Date: 20110824
  Receipt Date: 20110707
  Transmission Date: 20111222
  Serious: Yes (Hospitalization, Other)
  Sender: FDA-Public Use
  Company Number: PHHY2011JP61261

PATIENT
  Sex: Male
  Weight: 54 kg

DRUGS (9)
  1. EXJADE [Suspect]
     Indication: MYELODYSPLASTIC SYNDROME
     Dosage: 125 MG, DAILY
     Route: 048
     Dates: start: 20101016, end: 20101112
  2. ISOSORBIDE DINITRATE [Concomitant]
     Dosage: 40 MG
     Route: 048
  3. RISEDRONATE SODIUM [Concomitant]
     Dosage: 17.5 MG
     Route: 048
  4. ATELEC [Concomitant]
     Dosage: 10 MG
     Route: 048
  5. PREDNISOLONE [Concomitant]
     Indication: MYELODYSPLASTIC SYNDROME
     Dosage: 5 MG
     Route: 048
  6. MARZULENE [Concomitant]
     Indication: PROPHYLAXIS
     Dosage: 1 G
     Route: 048
  7. FAMOTIDINE [Concomitant]
     Indication: PROPHYLAXIS
     Dosage: 20 MG
     Route: 048
  8. EXJADE [Suspect]
     Dosage: 250 MG, DAILY
     Route: 048
     Dates: start: 20101113, end: 20110331
  9. ASPIRIN [Concomitant]
     Dosage: 100 MG
     Route: 048

REACTIONS (9)
  - NEOPLASM MALIGNANT [None]
  - SERUM FERRITIN INCREASED [None]
  - BLOOD LACTATE DEHYDROGENASE INCREASED [None]
  - PNEUMONIA [None]
  - NEOPLASM PROGRESSION [None]
  - NEUTROPHIL COUNT DECREASED [None]
  - BLOOD ALKALINE PHOSPHATASE INCREASED [None]
  - ALANINE AMINOTRANSFERASE INCREASED [None]
  - MONOCYTE COUNT INCREASED [None]
